FAERS Safety Report 16954161 (Version 1)
Quarter: 2019Q4

REPORT INFORMATION
  Report Type: Report from Study
  Country: IT (occurrence: IT)
  Receive Date: 20191023
  Receipt Date: 20191023
  Transmission Date: 20200122
  Serious: Yes (Hospitalization, Other)
  Sender: FDA-Public Use
  Company Number: NVSC2019IT005671

PATIENT
  Age: 45 Year
  Sex: Female

DRUGS (4)
  1. EXJADE [Suspect]
     Active Substance: DEFERASIROX
     Indication: THALASSAEMIA BETA
     Dosage: UNK, QW
     Route: 065
     Dates: start: 20061004
  2. JANUMET [Concomitant]
     Active Substance: METFORMIN HYDROCHLORIDE\SITAGLIPTIN PHOSPHATE
     Indication: PRODUCT USED FOR UNKNOWN INDICATION
     Route: 065
  3. DESFERAL [Suspect]
     Active Substance: DEFEROXAMINE MESYLATE
     Indication: THALASSAEMIA BETA
     Dosage: UNK
     Route: 058
     Dates: start: 1979
  4. DEFERASIROX. [Suspect]
     Active Substance: DEFERASIROX
     Indication: THALASSAEMIA BETA
     Dosage: UNK
     Route: 048
     Dates: start: 201709

REACTIONS (28)
  - Gastritis erosive [Unknown]
  - Oesophagitis [Unknown]
  - Lactose intolerance [Unknown]
  - Gastric disorder [Unknown]
  - Cough [Unknown]
  - Nodule [Unknown]
  - Dacryocystitis [Unknown]
  - Obesity [Unknown]
  - Hyperaemia [Unknown]
  - Comminuted fracture [Unknown]
  - Drug hypersensitivity [Unknown]
  - Amenorrhoea [Unknown]
  - Hypoglycaemia [Not Recovered/Not Resolved]
  - Nasal turbinate hypertrophy [Unknown]
  - Intestinal polyp [Unknown]
  - Dysplasia [Unknown]
  - Hypothyroidism [Unknown]
  - Spinal fracture [Unknown]
  - Foot fracture [Unknown]
  - Adenoma benign [Unknown]
  - Tracheitis [Unknown]
  - Hypogonadism [Unknown]
  - Hepatitis C virus test positive [Unknown]
  - Type 1 diabetes mellitus [Unknown]
  - Wrist fracture [Unknown]
  - Osteoporosis [Unknown]
  - Gastrooesophageal reflux disease [Unknown]
  - Product use issue [Unknown]

NARRATIVE: CASE EVENT DATE: 1983
